FAERS Safety Report 8964284 (Version 2)
Quarter: 2013Q1

REPORT INFORMATION
  Report Type: Spontaneous
  Country: JP (occurrence: JP)
  Receive Date: 20121213
  Receipt Date: 20130127
  Transmission Date: 20140127
  Serious: Yes (Life-Threatening, Hospitalization)
  Sender: FDA-Public Use
  Company Number: JP-009507513-1011USA01628

PATIENT
  Age: 65 Year
  Sex: Female
  Weight: 39.5 kg

DRUGS (9)
  1. FOSAMAC TABLETS 35MG [Suspect]
     Indication: OSTEOPOROSIS
     Dosage: 35 MG, QW
     Route: 048
     Dates: start: 20071210, end: 20090625
  2. PREDNISOLONE [Suspect]
     Dosage: 5 MG, QD
     Route: 048
     Dates: start: 1981
  3. AZULFIDINE EN [Concomitant]
     Indication: RHEUMATOID ARTHRITIS
     Dosage: 500 MG, BID
     Route: 048
     Dates: start: 1996
  4. VOLTAREN SR [Concomitant]
     Indication: RHEUMATOID ARTHRITIS
     Dosage: 37.5 MG, BID
     Route: 048
     Dates: start: 1996
  5. PROCYLIN [Concomitant]
     Indication: RHEUMATOID ARTHRITIS
     Dosage: 20 MICROGRAM, BID
     Route: 048
     Dates: start: 20071108
  6. THEOLONG [Concomitant]
     Indication: ASTHMA
     Dosage: 200 MG, BID
     Route: 048
     Dates: start: 1981
  7. CLARITH [Concomitant]
     Indication: PULMONARY FIBROSIS
     Dosage: 200 MG, QD
     Route: 048
     Dates: start: 20030121
  8. OMEPRAL [Concomitant]
     Indication: GASTRIC ULCER
     Dosage: 10 MG, QD
     Route: 048
     Dates: start: 20060117
  9. ROCALTROL [Concomitant]
     Indication: OSTEOPOROSIS
     Dosage: 0.25 MICROGRAM, QD
     Route: 048
     Dates: start: 20000111

REACTIONS (1)
  - Osteomyelitis [Recovered/Resolved]
